FAERS Safety Report 25907320 (Version 1)
Quarter: 2025Q4

REPORT INFORMATION
  Report Type: Spontaneous
  Country: US (occurrence: None)
  Receive Date: 20251010
  Receipt Date: 20251010
  Transmission Date: 20260118
  Serious: Yes (Life-Threatening, Hospitalization)
  Sender: FDA-CTU
  Company Number: None

PATIENT
  Age: 58 Year
  Sex: Female

DRUGS (4)
  1. CYCLOSPORINE [Suspect]
     Active Substance: CYCLOSPORINE
     Indication: Transplant
     Dosage: 50 MG TWICE  DAY ORAL ?
     Route: 048
     Dates: start: 20190819
  2. MYCOPHENOLATE MOFETIL [Suspect]
     Active Substance: MYCOPHENOLATE MOFETIL
     Indication: Transplant
     Dosage: 500 MG TWICE  A DAY ORAL
     Route: 048
     Dates: start: 20190819
  3. Levothyroxine 0.1mg [Concomitant]
  4. CARISOPRODOL [Concomitant]
     Active Substance: CARISOPRODOL

REACTIONS (2)
  - Kidney infection [None]
  - General physical health deterioration [None]

NARRATIVE: CASE EVENT DATE: 20250915
